FAERS Safety Report 4915127-5 (Version None)
Quarter: 2006Q1

REPORT INFORMATION
  Report Type: 
  Country: None (occurrence: None)
  Receive Date: 20060215
  Receipt Date: 20060215
  Transmission Date: 20060701
  Serious: No
  Sender: FDA-Public Use
  Company Number: None

PATIENT
  Age: 64 Year
  Sex: Male
  Weight: 61.2356 kg

DRUGS (1)
  1. PPD-TUBERCULIN            AVENTIS [Suspect]
     Indication: TUBERCULIN TEST
     Dosage: .1 ML INTRADERMAL
     Route: 023
     Dates: start: 20060131

REACTIONS (3)
  - CELLULITIS [None]
  - LYMPHANGITIS [None]
  - TENDERNESS [None]
